FAERS Safety Report 5985085-3 (Version None)
Quarter: 2008Q4

REPORT INFORMATION
  Report Type: 
  Country: None (occurrence: None)
  Receive Date: 20081208
  Receipt Date: 20080604
  Transmission Date: 20090506
  Serious: Yes (Hospitalization)
  Sender: FDA-Public Use
  Company Number: US-AMGEN-QUU281751

PATIENT
  Sex: Male
  Weight: 76.3 kg

DRUGS (5)
  1. ENBREL [Suspect]
     Indication: RHEUMATOID ARTHRITIS
     Route: 058
     Dates: start: 20041110
  2. PREDNISONE TAB [Suspect]
  3. MOBIC [Suspect]
  4. ARAVA [Concomitant]
  5. TOPROL-XL [Concomitant]

REACTIONS (4)
  - ABDOMINAL ABSCESS [None]
  - CARDIAC FAILURE CONGESTIVE [None]
  - INTESTINAL PERFORATION [None]
  - SEPSIS [None]
